FAERS Safety Report 8600670-8 (Version None)
Quarter: 2012Q3

REPORT INFORMATION
  Report Type: 
  Country: None (occurrence: None)
  Receive Date: 20120817
  Receipt Date: 20120807
  Transmission Date: 20120928
  Serious: Yes (Hospitalization)
  Sender: FDA-Public Use
  Company Number: DE-JNJFOC-20120800524

PATIENT
  Age: 72 Year
  Sex: Male

DRUGS (5)
  1. REMICADE [Suspect]
     Indication: RHEUMATOID ARTHRITIS
     Dosage: CUMMULATIVE DOSE UNTIL SEP-2011 WAS 200 MG
     Route: 042
     Dates: start: 20100301, end: 20110921
  2. METHOTREXATE [Concomitant]
     Dates: start: 19950101, end: 20110901
  3. REMICADE [Suspect]
     Route: 042
     Dates: start: 20070201, end: 20090101
  4. GOLIMUMAB [Concomitant]
     Dates: start: 20091101, end: 20100301
  5. TOCILIZUMAB [Concomitant]
     Dates: start: 20090801, end: 20091001

REACTIONS (4)
  - THROMBOPHLEBITIS [None]
  - GASTRITIS [None]
  - OESOPHAGEAL CANDIDIASIS [None]
  - RECTAL CANCER METASTATIC [None]
